FAERS Safety Report 10100582 (Version 1)
Quarter: 2014Q2

REPORT INFORMATION
  Report Type: Spontaneous
  Country: TW (occurrence: TW)
  Receive Date: 20140423
  Receipt Date: 20140423
  Transmission Date: 20141212
  Serious: Yes (Hospitalization)
  Sender: FDA-Public Use
  Company Number: PHHY2014TW049017

PATIENT
  Age: 77 Year
  Sex: Male

DRUGS (7)
  1. RIVASTIGMINE [Suspect]
     Dosage: 3 MG, BID
  2. RIVASTIGMINE [Suspect]
     Dosage: 4.5 MG, BID
  3. RIVASTIGMINE [Suspect]
     Dosage: 1.5 MG, BID
  4. RIVASTIGMINE [Suspect]
     Dosage: 6 MG, PER DAY
  5. PAROXETINE [Suspect]
     Indication: ANTIDEPRESSANT THERAPY
     Dosage: 20 MG, QD
  6. ESTAZOLAM [Concomitant]
     Indication: HYPNOTHERAPY
     Dosage: 4 MG, QD
  7. ESCITALOPRAM [Concomitant]
     Dosage: 10 MG, DAILY

REACTIONS (9)
  - Pleurothotonus [Recovered/Resolved]
  - Drooling [Unknown]
  - Movement disorder [Unknown]
  - Gait disturbance [Unknown]
  - Depressed mood [Unknown]
  - Irritability [Unknown]
  - Suicidal ideation [Unknown]
  - Agitation [Unknown]
  - Therapeutic response decreased [Unknown]
